FAERS Safety Report 22831588 (Version 4)
Quarter: 2025Q2

REPORT INFORMATION
  Report Type: Report from Study
  Country: CA (occurrence: CA)
  Receive Date: 20230817
  Receipt Date: 20250402
  Transmission Date: 20250716
  Serious: Yes (Other)
  Sender: TAKEDA
  Company Number: CA-TAKEDA-2023TUS074899

PATIENT
  Age: 25 Year
  Sex: Female

DRUGS (5)
  1. VEDOLIZUMAB [Suspect]
     Active Substance: VEDOLIZUMAB
     Indication: Crohn^s disease
  2. VEDOLIZUMAB [Suspect]
     Active Substance: VEDOLIZUMAB
  3. VEDOLIZUMAB [Suspect]
     Active Substance: VEDOLIZUMAB
     Dosage: 300 MILLIGRAM, Q4WEEKS
     Dates: start: 20240506
  4. VEDOLIZUMAB [Suspect]
     Active Substance: VEDOLIZUMAB
     Dosage: 300 MILLIGRAM, Q4WEEKS
     Dates: end: 20250325
  5. MESALAMINE [Concomitant]
     Active Substance: MESALAMINE
     Dosage: UNK UNK, QD
     Dates: start: 20230610

REACTIONS (2)
  - Crohn^s disease [Unknown]
  - Off label use [Unknown]

NARRATIVE: CASE EVENT DATE: 20240506
